FAERS Safety Report 4733686-2 (Version None)
Quarter: 2005Q3

REPORT INFORMATION
  Report Type: 
  Country: None (occurrence: None)
  Receive Date: 20050721
  Receipt Date: 20050513
  Transmission Date: 20060218
  Serious: No
  Sender: FDA-Public Use
  Company Number: 2005SP000775

PATIENT
  Age: 61 Year
  Sex: Male

DRUGS (2)
  1. LUNESTA [Suspect]
     Dosage: .75-1.5 MG;HS;ORAL
     Route: 048
     Dates: start: 20050401
  2. LUNESTA [Suspect]
     Dosage: .75-1.5 MG;HS;ORAL
     Route: 048
     Dates: start: 20050401

REACTIONS (3)
  - DRUG INEFFECTIVE [None]
  - DYSGEUSIA [None]
  - INSOMNIA [None]
